FAERS Safety Report 16994213 (Version 1)
Quarter: 2019Q4

REPORT INFORMATION
  Report Type: Spontaneous
  Country: IT (occurrence: IT)
  Receive Date: 20191105
  Receipt Date: 20191105
  Transmission Date: 20200122
  Serious: Yes (Other)
  Sender: FDA-Public Use
  Company Number: IT-BEH-2019108715

PATIENT
  Age: 60 Year
  Sex: Male

DRUGS (1)
  1. PRIVIGEN [Suspect]
     Active Substance: HUMAN IMMUNOGLOBULIN G
     Indication: SECONDARY IMMUNODEFICIENCY
     Dosage: 100 MILLIGRAM, TOT
     Route: 042
     Dates: start: 20191015, end: 20191015

REACTIONS (4)
  - Infusion related reaction [Recovered/Resolved]
  - Myalgia [Recovered/Resolved]
  - Hyperpyrexia [Recovered/Resolved]
  - Dyspnoea [Recovered/Resolved]

NARRATIVE: CASE EVENT DATE: 20191015
